FAERS Safety Report 10207782 (Version 1)
Quarter: 2014Q2

REPORT INFORMATION
  Report Type: Spontaneous
  Country: US (occurrence: US)
  Receive Date: 20140530
  Receipt Date: 20140530
  Transmission Date: 20141212
  Serious: No
  Sender: FDA-Public Use
  Company Number: US-GLAXOSMITHKLINE-A1058892A

PATIENT
  Sex: Male

DRUGS (1)
  1. VENTOLIN [Suspect]

REACTIONS (3)
  - Thermal burn [Recovered/Resolved with Sequelae]
  - Ill-defined disorder [Recovered/Resolved with Sequelae]
  - Drug administration error [Recovered/Resolved with Sequelae]
